FAERS Safety Report 11311506 (Version 2)
Quarter: 2015Q3

REPORT INFORMATION
  Report Type: Report from Study
  Country: JP (occurrence: JP)
  Receive Date: 20150727
  Receipt Date: 20150729
  Transmission Date: 20151125
  Serious: Yes (Hospitalization)
  Sender: FDA-Public Use
  Company Number: JP-EISAI MEDICAL RESEARCH-EC-2015-008795

PATIENT
  Age: 55 Year
  Sex: Female
  Weight: 63 kg

DRUGS (13)
  1. LENVATINIB [Suspect]
     Active Substance: LENVATINIB
     Indication: LUNG ADENOCARCINOMA
     Route: 048
     Dates: start: 20150512, end: 20150619
  2. DENOTAS [Concomitant]
     Active Substance: CALCIUM CARBONATE\CHOLECALCIFEROL\MAGNESIUM CARBONATE
  3. DECADRON [Concomitant]
     Active Substance: DEXAMETHASONE
  4. OXYCODONE [Concomitant]
     Active Substance: OXYCODONE
  5. OXINORM [Concomitant]
     Active Substance: OXYCODONE HYDROCHLORIDE
  6. LOXOPROFEN [Concomitant]
     Active Substance: LOXOPROFEN
  7. LOXOMARIN [Concomitant]
     Active Substance: LOXOPROFEN
  8. MAGMITT [Concomitant]
     Active Substance: MAGNESIUM OXIDE
  9. MAGLAX [Concomitant]
     Active Substance: MAGNESIUM OXIDE
  10. PICOSULFATE NA [Concomitant]
  11. HYALEIN [Concomitant]
     Active Substance: HYALURONATE SODIUM
  12. MARZULENE [Concomitant]
     Active Substance: SODIUM GUALENATE
  13. NEXIUM [Concomitant]
     Active Substance: ESOMEPRAZOLE MAGNESIUM

REACTIONS (1)
  - Malaise [Not Recovered/Not Resolved]

NARRATIVE: CASE EVENT DATE: 20150718
